FAERS Safety Report 8121281-7 (Version None)
Quarter: 2012Q1

REPORT INFORMATION
  Report Type: 
  Country: None (occurrence: None)
  Receive Date: 20120203
  Receipt Date: 20120126
  Transmission Date: 20120608
  Serious: Yes (Other)
  Sender: FDA-Public Use
  Company Number: AUR-APL-2012-00568

PATIENT
  Age: 63 Year
  Sex: Male

DRUGS (13)
  1. LANSOPRAZOLE [Concomitant]
  2. COLCHICINE [Concomitant]
  3. DIGOXIN [Concomitant]
  4. LOPRAZOLAM (LOPRAZOLAM) [Concomitant]
  5. BISOPROLOL FUMARATE [Concomitant]
  6. RAMIPRIL [Suspect]
     Indication: PRODUCT USED FOR UNKNOWN INDICATION
     Dosage: 7.5 MG (7.5 MG,1 IN 1D),ORAL
     Route: 048
  7. FUROSEMIDE [Concomitant]
  8. ALLOPURINOL [Concomitant]
  9. CO-CODAMOL (PANAEDEINE CO) [Concomitant]
  10. PREDNISOLONE [Concomitant]
  11. SIMVASTATIN [Concomitant]
  12. TRAMADOL HCL [Concomitant]
  13. WARFARIN SODIUM [Concomitant]

REACTIONS (2)
  - CONCOMITANT DISEASE AGGRAVATED [None]
  - GOUT [None]
